FAERS Safety Report 20724749 (Version 3)
Quarter: 2022Q3

REPORT INFORMATION
  Report Type: Spontaneous
  Country: ES (occurrence: ES)
  Receive Date: 20220419
  Receipt Date: 20220713
  Transmission Date: 20221027
  Serious: Yes (Other)
  Sender: FDA-Public Use
  Company Number: ES-009507513-2204ESP005120

PATIENT
  Age: 43 Year
  Sex: Female

DRUGS (1)
  1. PREVYMIS [Suspect]
     Active Substance: LETERMOVIR
     Indication: Prophylaxis
     Dosage: 480 MG/24H
     Route: 048
     Dates: start: 20211126, end: 20220201

REACTIONS (2)
  - Cytomegalovirus infection reactivation [Recovered/Resolved]
  - Pathogen resistance [Unknown]

NARRATIVE: CASE EVENT DATE: 20220201
